FAERS Safety Report 14602850 (Version 2)
Quarter: 2018Q3

REPORT INFORMATION
  Report Type: Report from Study
  Country: CA (occurrence: CA)
  Receive Date: 20180306
  Receipt Date: 20180731
  Transmission Date: 20181010
  Serious: Yes (Other)
  Sender: FDA-Public Use
  Company Number: PHHY2018CA005912

PATIENT
  Age: 61 Year
  Sex: Male

DRUGS (2)
  1. LENVATINIB [Suspect]
     Active Substance: LENVATINIB
     Indication: PRODUCT USED FOR UNKNOWN INDICATION
     Dosage: 18 MG, UNK
     Route: 065
  2. AFINITOR [Suspect]
     Active Substance: EVEROLIMUS
     Indication: METASTATIC RENAL CELL CARCINOMA
     Dosage: 5 MG, QD
     Route: 048
     Dates: start: 20171223

REACTIONS (8)
  - Nasal ulcer [Unknown]
  - Thrombosis [Unknown]
  - Pruritus [Unknown]
  - Oropharyngeal pain [Unknown]
  - Therapeutic response decreased [Unknown]
  - Epistaxis [Unknown]
  - Acne [Unknown]
  - Erythema [Unknown]

NARRATIVE: CASE EVENT DATE: 20180328
